FAERS Safety Report 10382324 (Version 3)
Quarter: 2015Q1

REPORT INFORMATION
  Report Type: Spontaneous
  Country: US (occurrence: US)
  Receive Date: 20140813
  Receipt Date: 20150225
  Transmission Date: 20150720
  Serious: Yes (Hospitalization)
  Sender: FDA-Public Use
  Company Number: US-BAYER-2014-120738

PATIENT
  Age: 23 Year
  Sex: Female
  Weight: 85.71 kg

DRUGS (4)
  1. VENTOLIN [Concomitant]
     Active Substance: ALBUTEROL SULFATE
     Indication: ASTHMA
  2. ALBUTEROL. [Concomitant]
     Active Substance: ALBUTEROL
  3. MIRENA [Suspect]
     Active Substance: LEVONORGESTREL
     Indication: CONTRACEPTION
     Dosage: 20 MCG/24HR, CONT
     Route: 015
     Dates: start: 20110114, end: 20110825
  4. VITAMIN D [Concomitant]
     Active Substance: CHOLECALCIFEROL
     Indication: VITAMIN D INCREASED
     Dosage: UNK
     Dates: start: 2011

REACTIONS (12)
  - Injury [None]
  - Emotional distress [None]
  - Dyspareunia [None]
  - Decreased activity [None]
  - Device failure [None]
  - Uterine perforation [None]
  - Abdominal pain [None]
  - Pain [None]
  - Anxiety [None]
  - Psychological trauma [None]
  - Depression [None]
  - Device issue [None]

NARRATIVE: CASE EVENT DATE: 20110802
